FAERS Safety Report 19666788 (Version 1)
Quarter: 2021Q3

REPORT INFORMATION
  Report Type: Spontaneous
  Country: CN (occurrence: CN)
  Receive Date: 20210806
  Receipt Date: 20210806
  Transmission Date: 20211014
  Serious: Yes (Other)
  Sender: FDA-Public Use
  Company Number: CN-ASTRAZENECA-2021A655910

PATIENT
  Age: 62 Year
  Sex: Female
  Weight: 55 kg

DRUGS (1)
  1. TAGRISSO [Suspect]
     Active Substance: OSIMERTINIB
     Indication: NON-SMALL CELL LUNG CANCER
     Route: 048
     Dates: start: 20210323, end: 20210528

REACTIONS (1)
  - Extrasystoles [Recovering/Resolving]

NARRATIVE: CASE EVENT DATE: 20210701
